FAERS Safety Report 4683732-X (Version None)
Quarter: 2005Q2

REPORT INFORMATION
  Report Type: 
  Country: None (occurrence: None)
  Receive Date: 20050607
  Receipt Date: 20050531
  Transmission Date: 20051028
  Serious: Yes (Other)
  Sender: FDA-Public Use
  Company Number: PHEH2005US06078

PATIENT
  Age: 65 Year
  Sex: Female

DRUGS (2)
  1. ZELNORM [Suspect]
     Indication: IRRITABLE BOWEL SYNDROME
     Dosage: 6 MG, QD
     Route: 048
     Dates: start: 20040101
  2. ESTRACE [Concomitant]
     Dosage: 1 MG, UNK
     Route: 048
     Dates: start: 19950101

REACTIONS (6)
  - DIARRHOEA [None]
  - DRY MOUTH [None]
  - POLLAKIURIA [None]
  - TACHYCARDIA [None]
  - TINNITUS [None]
  - VERTIGO [None]
